FAERS Safety Report 8216672-X (Version None)
Quarter: 2012Q1

REPORT INFORMATION
  Report Type: 
  Country: None (occurrence: None)
  Receive Date: 20120316
  Receipt Date: 20120308
  Transmission Date: 20120608
  Serious: Yes (Other)
  Sender: FDA-Public Use
  Company Number: JP-TEVA-2011005062

PATIENT
  Sex: Male
  Weight: 44 kg

DRUGS (4)
  1. TREANDA [Suspect]
     Indication: DIFFUSE LARGE B-CELL LYMPHOMA REFRACTORY
     Route: 041
     Dates: start: 20100803
  2. FEXOFENADINE HYDROCHLORIDE [Concomitant]
     Dates: start: 20110623
  3. OLOPATADINE HCL [Concomitant]
     Dates: start: 20110824
  4. LEVOTHYROXINE SODIUM [Concomitant]

REACTIONS (1)
  - ACUTE MYELOID LEUKAEMIA [None]
